FAERS Safety Report 12579949 (Version 4)
Quarter: 2017Q4

REPORT INFORMATION
  Report Type: Spontaneous
  Country: US (occurrence: US)
  Receive Date: 20160721
  Receipt Date: 20171101
  Transmission Date: 20180320
  Serious: Yes (Hospitalization, Other)
  Sender: FDA-Public Use
  Company Number: US-ASTRAZENECA-2016SE76991

PATIENT
  Age: 20308 Day
  Sex: Male
  Weight: 98.4 kg

DRUGS (24)
  1. ONGLYZA [Suspect]
     Active Substance: SAXAGLIPTIN HYDROCHLORIDE
     Indication: TYPE 2 DIABETES MELLITUS
     Route: 048
     Dates: start: 20150415
  2. ZOCOR [Concomitant]
     Active Substance: SIMVASTATIN
     Route: 048
     Dates: end: 20140318
  3. PLAVIX [Concomitant]
     Active Substance: CLOPIDOGREL BISULFATE
     Route: 048
     Dates: start: 20150720
  4. ONGLYZA [Suspect]
     Active Substance: SAXAGLIPTIN HYDROCHLORIDE
     Indication: TYPE 2 DIABETES MELLITUS
     Route: 048
     Dates: start: 20150720
  5. AMARYL [Concomitant]
     Active Substance: GLIMEPIRIDE
     Route: 048
     Dates: start: 20131219, end: 20140704
  6. ZESTRIL [Concomitant]
     Active Substance: LISINOPRIL
     Route: 048
     Dates: start: 20150817
  7. NICOTINE. [Concomitant]
     Active Substance: NICOTINE
     Dosage: 21 MG/24HR TRANSDERMAL PATCH 24 HOUR
     Route: 062
     Dates: start: 20170706
  8. ZESTRIL [Concomitant]
     Active Substance: LISINOPRIL
     Route: 048
     Dates: start: 20150317
  9. ASPIRIN. [Concomitant]
     Active Substance: ASPIRIN
     Route: 048
  10. COREG [Concomitant]
     Active Substance: CARVEDILOL
     Route: 048
     Dates: end: 20150115
  11. COREG [Concomitant]
     Active Substance: CARVEDILOL
     Route: 048
     Dates: start: 20150317
  12. LIPITOR [Concomitant]
     Active Substance: ATORVASTATIN CALCIUM
     Route: 048
     Dates: start: 20150720
  13. ATORVASTATIN CALCIUM. [Concomitant]
     Active Substance: ATORVASTATIN CALCIUM
     Route: 048
     Dates: start: 20150724
  14. STAXYN [Concomitant]
     Active Substance: VARDENAFIL HYDROCHLORIDE TRIHYDRATE
     Route: 048
     Dates: start: 20131122, end: 20150115
  15. JARDIANCE [Concomitant]
     Active Substance: EMPAGLIFLOZIN
     Route: 048
     Dates: start: 20170427
  16. ONGLYZA [Suspect]
     Active Substance: SAXAGLIPTIN HYDROCHLORIDE
     Indication: TYPE 2 DIABETES MELLITUS
     Route: 048
     Dates: start: 201504, end: 201506
  17. ONGLYZA [Suspect]
     Active Substance: SAXAGLIPTIN HYDROCHLORIDE
     Indication: TYPE 2 DIABETES MELLITUS
     Route: 048
     Dates: start: 20150516
  18. VOLTAREN [Concomitant]
     Active Substance: DICLOFENAC SODIUM
     Route: 048
     Dates: start: 20131216, end: 20140315
  19. ZOCOR [Concomitant]
     Active Substance: SIMVASTATIN
     Route: 048
     Dates: start: 20150317
  20. TRADJENTA [Concomitant]
     Active Substance: LINAGLIPTIN
     Route: 048
     Dates: start: 20131223, end: 20140318
  21. PRILOSEC [Concomitant]
     Active Substance: OMEPRAZOLE MAGNESIUM
     Route: 048
     Dates: start: 20131018, end: 20140318
  22. NITROSTAT [Concomitant]
     Active Substance: NITROGLYCERIN
     Route: 060
     Dates: start: 20150720
  23. AMARYL [Concomitant]
     Active Substance: GLIMEPIRIDE
     Route: 048
     Dates: start: 20150317
  24. FLEXERIL [Concomitant]
     Active Substance: CYCLOBENZAPRINE HYDROCHLORIDE
     Route: 048

REACTIONS (4)
  - Acute myocardial infarction [Unknown]
  - Cardiac failure congestive [Unknown]
  - Hepatocellular carcinoma [Unknown]
  - Coronary artery stenosis [Unknown]

NARRATIVE: CASE EVENT DATE: 20150717
